FAERS Safety Report 23971308 (Version 1)
Quarter: 2024Q2

REPORT INFORMATION
  Report Type: Spontaneous
  Country: IL (occurrence: IL)
  Receive Date: 20240613
  Receipt Date: 20240613
  Transmission Date: 20240715
  Serious: Yes (Hospitalization)
  Sender: FDA-Public Use
  Company Number: IL-BoehringerIngelheim-2024-BI-033626

PATIENT
  Age: 82 Year
  Sex: Male

DRUGS (2)
  1. OFEV [Suspect]
     Active Substance: NINTEDANIB
     Indication: Product used for unknown indication
     Dates: start: 2024
  2. OFEV [Suspect]
     Active Substance: NINTEDANIB
     Dates: start: 2024

REACTIONS (3)
  - Appendicitis [Unknown]
  - Vomiting [Unknown]
  - Nausea [Unknown]
